FAERS Safety Report 7913111-0 (Version None)
Quarter: 2011Q4

REPORT INFORMATION
  Report Type: 
  Country: None (occurrence: None)
  Receive Date: 20111114
  Receipt Date: 20111031
  Transmission Date: 20120403
  Serious: No
  Sender: FDA-Public Use
  Company Number: US-B.I. PHARMACEUTICALS,INC./RIDGEFIELD-2011-BP-25237BP

PATIENT
  Sex: Female

DRUGS (6)
  1. VITAMIN B-12 [Concomitant]
  2. ATIVAN [Concomitant]
  3. ZANTAC 150 [Suspect]
     Indication: DYSPEPSIA
     Dosage: 300 MG
     Route: 048
     Dates: start: 20111027
  4. ASPIRIN [Concomitant]
     Dosage: 162 MG
  5. ZANTAC 150 [Suspect]
  6. ANTIHYPERTENSIVE [Concomitant]

REACTIONS (1)
  - INCREASED UPPER AIRWAY SECRETION [None]
